FAERS Safety Report 26038162 (Version 1)
Quarter: 2025Q4

REPORT INFORMATION
  Report Type: Report from Study
  Country: US (occurrence: US)
  Receive Date: 20251113
  Receipt Date: 20251113
  Transmission Date: 20260118
  Serious: Yes (Other)
  Sender: ABBVIE
  Company Number: US-ABBVIE-6139772

PATIENT
  Age: 37 Year
  Sex: Female

DRUGS (5)
  1. SYNTHROID [Suspect]
     Active Substance: LEVOTHYROXINE SODIUM
     Indication: Post procedural hypothyroidism
     Route: 048
     Dates: start: 20250210
  2. SYNTHROID [Suspect]
     Active Substance: LEVOTHYROXINE SODIUM
     Indication: Post procedural hypothyroidism
     Route: 048
  3. TYLENOL [Concomitant]
     Active Substance: ACETAMINOPHEN
     Indication: Pregnancy
  4. ASPIRIN [Concomitant]
     Active Substance: ASPIRIN
     Indication: Pregnancy
     Dosage: DAILY
  5. IRON [Concomitant]
     Active Substance: IRON
     Indication: Pregnancy

REACTIONS (6)
  - Caesarean section [Unknown]
  - Maternal exposure during pregnancy [Unknown]
  - Infection [Unknown]
  - Pyrexia [Unknown]
  - Pre-eclampsia [Unknown]
  - Live birth [Unknown]

NARRATIVE: CASE EVENT DATE: 20250627
